FAERS Safety Report 25769421 (Version 2)
Quarter: 2025Q3

REPORT INFORMATION
  Report Type: Spontaneous
  Country: US (occurrence: US)
  Receive Date: 20250906
  Receipt Date: 20250930
  Transmission Date: 20251020
  Serious: Yes (Other)
  Sender: AMNEAL
  Company Number: US-AMNEAL-2025-AMRX-02525

PATIENT
  Age: 62 Year
  Sex: Male
  Weight: 70.295 kg

DRUGS (6)
  1. BACLOFEN [Suspect]
     Active Substance: BACLOFEN
     Indication: Product used for unknown indication
     Dosage: 300 MICROGRAM, DAILY (2000 MCG/ML)
     Route: 039
  2. BACLOFEN [Suspect]
     Active Substance: BACLOFEN
     Dosage: 1100 MICROGRAM, DAILY
     Route: 039
  3. BACLOFEN [Suspect]
     Active Substance: BACLOFEN
     Dosage: 200 MICROGRAM, DAILY
     Route: 039
  4. BACLOFEN [Suspect]
     Active Substance: BACLOFEN
     Dosage: 890 MICROGRAM, DAILY (2000 MCG/ML)
     Route: 037
  5. BACLOFEN [Suspect]
     Active Substance: BACLOFEN
     Route: 039
  6. GABLOFEN [Suspect]
     Active Substance: BACLOFEN
     Indication: Product used for unknown indication
     Route: 037

REACTIONS (5)
  - Implant site extravasation [Recovered/Resolved]
  - Cerebrospinal fluid leakage [Recovered/Resolved]
  - Tinnitus [Not Recovered/Not Resolved]
  - Muscle spasticity [Not Recovered/Not Resolved]
  - Device connection issue [Recovered/Resolved]

NARRATIVE: CASE EVENT DATE: 20241204
